FAERS Safety Report 9506316 (Version 1)
Quarter: 2013Q1

REPORT INFORMATION
  Report Type: Spontaneous
  Country: US (occurrence: None)
  Receive Date: 20130305
  Receipt Date: 20130305
  Transmission Date: 20140127
  Serious: Yes (Other)
  Sender: FDA-Public Use
  Company Number: 163-21880-12050441

PATIENT
  Age: 65 Year
  Sex: Female
  Weight: 67.59 kg

DRUGS (10)
  1. REVLIMID [Suspect]
     Indication: PLASMA CELL MYELOMA
     Dosage: 5 MG, TID FOLLOWING DIALYSIS, PO
     Route: 048
     Dates: start: 20100602, end: 20120501
  2. ACYCLOVIR (ACICLOVIR) (TABLETS) [Concomitant]
  3. ALPRAZOLAM (ALPRAZOLAM) (TABLETS) [Concomitant]
  4. ASPIRIN (ACETYLSALICYLIC ACID) (ENTERIC-COATED TABLET) [Concomitant]
  5. DEXAMETHASONE (DEXAMETHASONE) (4 MG, TABLETS) [Concomitant]
  6. FENTANYL (FENTANYL) (POULTICE OR PATCH) [Concomitant]
  7. HYDROCODONE/ APAP (VICODIN) (TABLETS) [Concomitant]
  8. ONDANSETRON (ONDANSETRON) (TABLETS) [Concomitant]
  9. CALCIUM ACETATE (CALCIUM ACETATE) (TABLETS) [Concomitant]
  10. VITAL-D (VITAMINS, OTHER COMBINATIONS) (TABLETS) [Concomitant]

REACTIONS (1)
  - Anaemia [None]
